FAERS Safety Report 16089451 (Version 1)
Quarter: 2019Q1

REPORT INFORMATION
  Report Type: Spontaneous
  Country: US (occurrence: US)
  Receive Date: 20190319
  Receipt Date: 20190319
  Transmission Date: 20190418
  Serious: Yes (Other)
  Sender: FDA-Public Use
  Company Number: US-PFIZER INC-2019051678

PATIENT
  Age: 36 Year
  Sex: Female

DRUGS (1)
  1. LYRICA [Suspect]
     Active Substance: PREGABALIN
     Indication: NEURALGIA
     Dosage: 300 MG, 3X/DAY (300 MG OF 8 HOURS (900 MG, DAILY))
     Route: 048
     Dates: start: 20170828

REACTIONS (2)
  - Systemic lupus erythematosus [Unknown]
  - Prescribed overdose [Unknown]
